FAERS Safety Report 8566440-4 (Version None)
Quarter: 2012Q3

REPORT INFORMATION
  Report Type: 
  Country: None (occurrence: None)
  Receive Date: 20120803
  Receipt Date: 20120103
  Transmission Date: 20120928
  Serious: No
  Sender: FDA-Public Use
  Company Number: US-ABBOTT-12P-163-0889082-00

PATIENT
  Sex: Male
  Weight: 136.2 kg

DRUGS (9)
  1. BENICAR HCT [Concomitant]
     Indication: PRODUCT USED FOR UNKNOWN INDICATION
  2. FUROSEMIDE [Concomitant]
     Indication: PRODUCT USED FOR UNKNOWN INDICATION
  3. POTASSIUM CHLORIDE [Concomitant]
     Indication: VITAMIN SUPPLEMENTATION
  4. ASPIRIN [Concomitant]
     Indication: PRODUCT USED FOR UNKNOWN INDICATION
  5. NIASPAN [Suspect]
     Indication: BLOOD CHOLESTEROL
     Dates: start: 20111201
  6. JANUVIA [Concomitant]
     Indication: DIABETES MELLITUS
  7. CRESTOR [Concomitant]
     Indication: PRODUCT USED FOR UNKNOWN INDICATION
  8. METOPROLOL TARTRATE [Concomitant]
     Indication: CARDIAC DISORDER
  9. NIFEDIPINE [Concomitant]
     Indication: HYPERTENSION

REACTIONS (2)
  - PRURITUS [None]
  - BLOOD GLUCOSE INCREASED [None]
